FAERS Safety Report 8811067 (Version 1)
Quarter: 2012Q4

REPORT INFORMATION
  Report Type: Spontaneous
  Country: US (occurrence: None)
  Receive Date: 20120925
  Receipt Date: 20120925
  Transmission Date: 20130627
  Serious: Yes (Hospitalization)
  Sender: FDA-Public Use
  Company Number: None

PATIENT
  Age: 59 Year
  Sex: Male
  Weight: 130.64 kg

DRUGS (1)
  1. ACTOS [Suspect]
     Indication: DIABETES
     Dates: start: 1999, end: 20120829

REACTIONS (8)
  - Nephrolithiasis [None]
  - Gastritis [None]
  - Cellulitis [None]
  - Fluid retention [None]
  - Prostatomegaly [None]
  - Oedema peripheral [None]
  - Cystitis noninfective [None]
  - Gastritis [None]
